FAERS Safety Report 23575316 (Version 1)
Quarter: 2024Q1

REPORT INFORMATION
  Report Type: Spontaneous
  Country: US (occurrence: US)
  Receive Date: 20240228
  Receipt Date: 20240228
  Transmission Date: 20240410
  Serious: Yes (Other)
  Sender: FDA-Public Use
  Company Number: US-SA-SAC20240225000014

PATIENT
  Age: 45 Year
  Sex: Female

DRUGS (1)
  1. TOUJEO [Suspect]
     Active Substance: INSULIN GLARGINE
     Dosage: UNK
     Route: 065

REACTIONS (11)
  - Loss of consciousness [Unknown]
  - Impaired gastric emptying [Unknown]
  - Illness [Unknown]
  - Feeling abnormal [Unknown]
  - Hot flush [Unknown]
  - Rhinovirus infection [Unknown]
  - Obstructive airways disorder [Unknown]
  - Alopecia [Unknown]
  - Blood glucose fluctuation [Unknown]
  - Blood glucose increased [Unknown]
  - Blood glucose decreased [Unknown]
